FAERS Safety Report 7716164-8 (Version None)
Quarter: 2011Q3

REPORT INFORMATION
  Report Type: 
  Country: None (occurrence: None)
  Receive Date: 20110829
  Receipt Date: 20110817
  Transmission Date: 20111222
  Serious: Yes (Congenital Anomaly)
  Sender: FDA-Public Use
  Company Number: DK-ELI_LILLY_AND_COMPANY-DK201108005573

PATIENT
  Weight: 16 kg

DRUGS (4)
  1. FLUOXETINE HCL [Suspect]
     Indication: DEPRESSION
     Dosage: 20 MG, QD
     Route: 064
     Dates: end: 20070101
  2. FLUOXETINE HCL [Suspect]
     Dosage: 20 MG, QD
     Route: 064
     Dates: end: 20070101
  3. INNOHEP                                 /GFR/ [Concomitant]
     Dosage: UNK
     Route: 064
     Dates: start: 20070601, end: 20070901
  4. INNOHEP                                 /GFR/ [Concomitant]
     Indication: DEEP VEIN THROMBOSIS
     Dosage: UNK
     Route: 064
     Dates: start: 20070601, end: 20070901

REACTIONS (5)
  - EAR DISORDER [None]
  - MATERNAL EXPOSURE DURING PREGNANCY [None]
  - HYPERMETROPIA [None]
  - PSYCHOMOTOR RETARDATION [None]
  - SPEECH DISORDER DEVELOPMENTAL [None]
